FAERS Safety Report 7379619-4 (Version None)
Quarter: 2011Q1

REPORT INFORMATION
  Report Type: 
  Country: None (occurrence: None)
  Receive Date: 20110329
  Receipt Date: 20110321
  Transmission Date: 20110831
  Serious: Yes (Hospitalization, Other)
  Sender: FDA-Public Use
  Company Number: US-US-EMD SERONO, INC.-7011553

PATIENT
  Sex: Female
  Weight: 91 kg

DRUGS (5)
  1. ATENOLOL [Concomitant]
     Indication: HYPERTENSION
  2. REBIF [Suspect]
     Route: 058
     Dates: start: 20100101, end: 20110301
  3. REBIF [Suspect]
     Indication: MULTIPLE SCLEROSIS
     Route: 058
     Dates: start: 20100716, end: 20100101
  4. REBIF [Suspect]
     Dates: start: 20100101, end: 20100101
  5. LEVOXYL [Concomitant]
     Indication: HYPOTHYROIDISM

REACTIONS (13)
  - BLADDER INJURY [None]
  - POST PROCEDURAL INFECTION [None]
  - VAGINAL DISORDER [None]
  - BLADDER DISORDER [None]
  - URINARY BLADDER POLYP [None]
  - URINARY TRACT INFECTION [None]
  - MUSCLE SPASMS [None]
  - INJECTION SITE PAIN [None]
  - FLANK PAIN [None]
  - INFLUENZA LIKE ILLNESS [None]
  - CYSTITIS [None]
  - CHILLS [None]
  - INFECTION [None]
